FAERS Safety Report 6525561-8 (Version None)
Quarter: 2009Q4

REPORT INFORMATION
  Report Type: 
  Country: None (occurrence: None)
  Receive Date: 20091214
  Receipt Date: 20090117
  Transmission Date: 20100525
  Serious: Yes (Hospitalization)
  Sender: FDA-Public Use
  Company Number: 608851

PATIENT
  Age: 48 Year
  Sex: Male

DRUGS (2)
  1. PEGASYS [Suspect]
     Indication: HEPATITIS C
     Dates: start: 20081023
  2. RIBAVIRIN [Suspect]
     Indication: HEPATITIS C
     Dates: start: 20081023

REACTIONS (1)
  - ARTHRITIS INFECTIVE [None]
